FAERS Safety Report 8193571-3 (Version None)
Quarter: 2012Q1

REPORT INFORMATION
  Report Type: 
  Country: None (occurrence: None)
  Receive Date: 20120308
  Receipt Date: 20120229
  Transmission Date: 20120608
  Serious: Yes (Other)
  Sender: FDA-Public Use
  Company Number: JP-SANOFI-AVENTIS-2012SA014574

PATIENT
  Age: 87 Year
  Sex: Female

DRUGS (2)
  1. LASIX [Suspect]
     Route: 048
  2. LASIX [Suspect]
     Route: 048

REACTIONS (1)
  - TUNNEL VISION [None]
